FAERS Safety Report 9189231 (Version 1)
Quarter: 2013Q1

REPORT INFORMATION
  Report Type: Spontaneous
  Country: US (occurrence: None)
  Receive Date: 20130321
  Receipt Date: 20130321
  Transmission Date: 20140127
  Serious: Yes (Hospitalization)
  Sender: FDA-Public Use
  Company Number: None

PATIENT
  Sex: 0
  Weight: 67.59 kg

DRUGS (2)
  1. ZOSYN [Suspect]
  2. VANCOMYCIN [Suspect]

REACTIONS (2)
  - Blood creatinine increased [None]
  - Drug level increased [None]
